FAERS Safety Report 5545635-8 (Version None)
Quarter: 2007Q4

REPORT INFORMATION
  Report Type: 
  Country: None (occurrence: None)
  Receive Date: 20071211
  Receipt Date: 20071205
  Transmission Date: 20080405
  Serious: Yes (Hospitalization)
  Sender: FDA-Public Use
  Company Number: US-AVENTIS-200718510US

PATIENT
  Sex: Female

DRUGS (10)
  1. LOVENOX [Suspect]
     Dosage: DOSE: UNK
     Dates: start: 20071026, end: 20071108
  2. LOVENOX [Suspect]
     Dates: start: 20071109, end: 20071101
  3. COZAAR [Concomitant]
     Dosage: DOSE: UNK
  4. TIAZAC                             /00489702/ [Concomitant]
     Dosage: DOSE: UNK
  5. DIAZIDE                            /00413701/ [Concomitant]
     Dosage: DOSE: UNK
  6. GLIPIZIDE [Concomitant]
     Dosage: DOSE: UNK
  7. ACTONEL [Concomitant]
     Dosage: DOSE: UNK
  8. PREVACID [Concomitant]
     Dosage: DOSE: UNK
  9. MULTI-VITAMINS [Concomitant]
     Dosage: DOSE: UNK
  10. COUMADIN [Concomitant]
     Dosage: DOSE: UNK

REACTIONS (6)
  - HAEMATOMA [None]
  - INJECTION SITE HAEMATOMA [None]
  - OEDEMA PERIPHERAL [None]
  - PAIN IN EXTREMITY [None]
  - SKIN DISCOLOURATION [None]
  - WRONG TECHNIQUE IN DRUG USAGE PROCESS [None]
